FAERS Safety Report 7571066-5 (Version None)
Quarter: 2011Q2

REPORT INFORMATION
  Report Type: 
  Country: None (occurrence: None)
  Receive Date: 20110624
  Receipt Date: 20110622
  Transmission Date: 20111010
  Serious: Yes (Death, Other)
  Sender: FDA-Public Use
  Company Number: US-B.I. PHARMACEUTICALS,INC./RIDGEFIELD-2011-BP-10402BP

PATIENT
  Age: 75 Year
  Sex: Male

DRUGS (14)
  1. PRADAXA [Suspect]
     Indication: ANTICOAGULANT THERAPY
     Dosage: 300 MG
     Dates: start: 20110406, end: 20110410
  2. NIASPAN [Concomitant]
  3. ZITHROMAX [Concomitant]
  4. DRONEDARONE HCL [Concomitant]
  5. FLOMAX [Concomitant]
  6. NITROGLYCERIN [Concomitant]
  7. ROCEPHIN [Concomitant]
  8. EFFIENT [Concomitant]
     Dosage: 10 MG
  9. DECADRON [Concomitant]
     Dosage: 4 MG
  10. MOTRIN [Concomitant]
  11. ALTACE [Concomitant]
  12. SENNA [Concomitant]
  13. CARVEDILOL [Concomitant]
  14. CYMBALTA [Concomitant]

REACTIONS (2)
  - LARGE INTESTINE PERFORATION [None]
  - INTESTINAL PERFORATION [None]
